FAERS Safety Report 14138668 (Version 6)
Quarter: 2018Q2

REPORT INFORMATION
  Report Type: Spontaneous
  Country: US (occurrence: US)
  Receive Date: 20171027
  Receipt Date: 20180508
  Transmission Date: 20180711
  Serious: Yes (Hospitalization)
  Sender: FDA-Public Use
  Company Number: US-HLSUS-2017-US-000689

PATIENT
  Age: 49 Year
  Sex: Male

DRUGS (2)
  1. LITHIUM. [Concomitant]
     Active Substance: LITHIUM
     Dosage: 600 MG DAILY
  2. CLOZARIL [Suspect]
     Active Substance: CLOZAPINE
     Indication: DELUSION
     Dosage: 300 MG DAILY
     Route: 048
     Dates: start: 20170908

REACTIONS (16)
  - Dehydration [Unknown]
  - Gait disturbance [Unknown]
  - Abdominal adhesions [Unknown]
  - Tachycardia [Unknown]
  - Dizziness [Unknown]
  - Hepatic enzyme increased [Unknown]
  - Sepsis [Unknown]
  - Appendicitis perforated [Unknown]
  - Dysphagia [Unknown]
  - Weight increased [Unknown]
  - Vision blurred [Unknown]
  - Abdominal pain [Unknown]
  - Amnesia [Unknown]
  - Ketonuria [Unknown]
  - Influenza [Unknown]
  - Renal failure [None]

NARRATIVE: CASE EVENT DATE: 20180104
